FAERS Safety Report 18162244 (Version 2)
Quarter: 2020Q3

REPORT INFORMATION
  Report Type: Spontaneous
  Country: DE (occurrence: DE)
  Receive Date: 20200818
  Receipt Date: 20200901
  Transmission Date: 20201103
  Serious: Yes (Hospitalization, Other)
  Sender: FDA-Public Use
  Company Number: DE-MYLANLABS-2020M1070976

PATIENT
  Sex: Male
  Weight: 96 kg

DRUGS (13)
  1. VALSARTAN HEXAL COMP [Suspect]
     Active Substance: HYDROCHLOROTHIAZIDE\VALSARTAN
     Indication: HYPERTENSION
     Dosage: UNK
     Route: 065
  2. COTRIMOXAZOLE [Suspect]
     Active Substance: SULFAMETHOXAZOLE\TRIMETHOPRIM
     Indication: PRODUCT USED FOR UNKNOWN INDICATION
     Dosage: UNK
     Route: 065
  3. PANTOZOL [Concomitant]
     Active Substance: PANTOPRAZOLE SODIUM
     Indication: PRODUCT USED FOR UNKNOWN INDICATION
     Dosage: 40 MG, QD (MORNING)
     Route: 065
  4. METHOTREXATE. [Suspect]
     Active Substance: METHOTREXATE
     Indication: PRODUCT USED FOR UNKNOWN INDICATION
     Dosage: UNK
     Route: 065
  5. VALSARTAN 1A PHARMA PLUS [Suspect]
     Active Substance: HYDROCHLOROTHIAZIDE\VALSARTAN
     Indication: HYPERTENSION
     Dosage: 1 DF, QD (MORNING) (HYDROCHLOROTHIAZIDE 160 MG, VALSARTAN 12.5 MG) 1A PHARMA PLUS
     Route: 065
     Dates: start: 201606
  6. VALSARTAN 1A PHARMA PLUS [Suspect]
     Active Substance: HYDROCHLOROTHIAZIDE\VALSARTAN
     Dosage: 1 DF, QD (MORNING) (HYDROCHLOROTHIAZIDE 160 MG, VALSARTAN 12.5 MG)
     Route: 065
     Dates: start: 201401, end: 2014
  7. CLEXANE [Concomitant]
     Active Substance: ENOXAPARIN SODIUM
     Indication: PRODUCT USED FOR UNKNOWN INDICATION
     Dosage: 0.4 ML
     Route: 058
  8. ACIC                               /00587301/ [Concomitant]
     Active Substance: ACYCLOVIR
     Indication: PRODUCT USED FOR UNKNOWN INDICATION
     Dosage: 1 DF, BID (MORNING AND EVENING)
     Route: 065
  9. VALSARTAN HEXAL COMP [Suspect]
     Active Substance: HYDROCHLOROTHIAZIDE\VALSARTAN
     Dosage: UNK
     Dates: start: 2015, end: 2015
  10. CISPLATIN. [Suspect]
     Active Substance: CISPLATIN
     Indication: PRODUCT USED FOR UNKNOWN INDICATION
     Dosage: UNK
     Route: 065
  11. VALSARTAN 1A PHARMA PLUS [Suspect]
     Active Substance: HYDROCHLOROTHIAZIDE\VALSARTAN
     Dosage: 1 DF, QD (MORNING) (HYDROCHLOROTHIAZIDE 160 MG, VALSARTAN 12.5 MG) 1A PHARMA PLUS
     Route: 065
  12. DIOVAN [Suspect]
     Active Substance: VALSARTAN
     Indication: PRODUCT USED FOR UNKNOWN INDICATION
     Dosage: UNK
     Route: 065
  13. ACIC                               /00587301/ [Concomitant]
     Active Substance: ACYCLOVIR
     Dosage: 2 DF, QD (NOON)
     Route: 065

REACTIONS (25)
  - Nocturia [Unknown]
  - Exercise tolerance decreased [Not Recovered/Not Resolved]
  - Ascites [Unknown]
  - Non-Hodgkin^s lymphoma [Unknown]
  - Dyspnoea [Unknown]
  - Anaemia [Not Recovered/Not Resolved]
  - Productive cough [Unknown]
  - Night sweats [Unknown]
  - Oedema peripheral [Unknown]
  - Acute kidney injury [Unknown]
  - Skin disorder [Unknown]
  - Bronchitis [Unknown]
  - Cough [Unknown]
  - Immunodeficiency [Not Recovered/Not Resolved]
  - Mitral valve incompetence [Unknown]
  - Benign prostatic hyperplasia [Unknown]
  - Nasopharyngitis [Unknown]
  - Ventricular dysfunction [Unknown]
  - Hypogonadism [Not Recovered/Not Resolved]
  - Fatigue [Not Recovered/Not Resolved]
  - Disease recurrence [Unknown]
  - Mass [Unknown]
  - Polyneuropathy [Not Recovered/Not Resolved]
  - Cardiac failure [Not Recovered/Not Resolved]
  - Basal cell carcinoma [Unknown]

NARRATIVE: CASE EVENT DATE: 201411
